FAERS Safety Report 8771667 (Version 2)
Quarter: 2012Q4

REPORT INFORMATION
  Report Type: 
  Country: DK (occurrence: CN)
  Receive Date: 20120906
  Receipt Date: 20120914
  Transmission Date: 20130627
  Serious: Yes (Hospitalization)
  Sender: FDA-Public Use
  Company Number: CN-FRI-1000038391

PATIENT
  Age: 70 Year
  Sex: Male

DRUGS (3)
  1. CITALOPRAM [Suspect]
     Indication: DEPRESSION
     Dosage: 20 mg
  2. ALPRAZOLANIC [Concomitant]
     Indication: DEPRESSION
     Dosage: 0.4 g
  3. BAILENING [Concomitant]
     Indication: DEPRESSION

REACTIONS (1)
  - Coma [Unknown]
